FAERS Safety Report 6370223-3 (Version None)
Quarter: 2009Q3

REPORT INFORMATION
  Report Type: 
  Country: None (occurrence: None)
  Receive Date: 20090918
  Receipt Date: 20090908
  Transmission Date: 20100115
  Serious: No
  Sender: FDA-Public Use
  Company Number: 374212

PATIENT
  Age: 68 Year
  Sex: Male
  Weight: 91.17 kg

DRUGS (2)
  1. MIDAZOLAM HCL INJ., 1+5MG BASE/ML (PRESERVATIVE FREE) (VIALS) (MIDAZOL [Suspect]
     Indication: SEDATIVE THERAPY
     Dosage: 2 MG, 2 DAY, INTRAVENOUS
     Route: 042
     Dates: start: 20090831, end: 20090831
  2. FENTANYL [Concomitant]

REACTIONS (3)
  - AGGRESSION [None]
  - AGITATION [None]
  - DRUG EFFECT DECREASED [None]
